FAERS Safety Report 17580043 (Version 1)
Quarter: 2020Q1

REPORT INFORMATION
  Report Type: Spontaneous
  Country: FR (occurrence: FR)
  Receive Date: 20200325
  Receipt Date: 20200325
  Transmission Date: 20200409
  Serious: Yes (Hospitalization)
  Sender: FDA-Public Use
  Company Number: FR-JNJFOC-20200327404

PATIENT
  Age: 20 Year
  Sex: Male

DRUGS (3)
  1. HALDOL [Suspect]
     Active Substance: HALOPERIDOL
     Indication: DELIRIUM
     Route: 048
     Dates: start: 20200224, end: 20200226
  2. VALIUM [Suspect]
     Active Substance: DIAZEPAM
     Indication: DELIRIUM
     Route: 048
     Dates: start: 20200224, end: 20200226
  3. NOZINAN [Suspect]
     Active Substance: LEVOMEPROMAZINE
     Indication: DELIRIUM
     Route: 048
     Dates: start: 20200224, end: 20200226

REACTIONS (4)
  - Off label use [Unknown]
  - Coma [Recovered/Resolved]
  - Dyskinesia [Recovering/Resolving]
  - Incorrect dose administered [Unknown]

NARRATIVE: CASE EVENT DATE: 20200224
